FAERS Safety Report 10056711 (Version 2)
Quarter: 2014Q2

REPORT INFORMATION
  Report Type: Spontaneous
  Country: IE (occurrence: IE)
  Receive Date: 20140403
  Receipt Date: 20140607
  Transmission Date: 20141212
  Serious: Yes (Hospitalization)
  Sender: FDA-Public Use
  Company Number: PHFR2014IE002585

PATIENT
  Sex: Female

DRUGS (1)
  1. CLOZARIL [Suspect]
     Dosage: UNK
     Route: 048
     Dates: start: 20040802

REACTIONS (1)
  - General physical condition abnormal [Unknown]
